FAERS Safety Report 5318467-3 (Version None)
Quarter: 2007Q2

REPORT INFORMATION
  Report Type: 
  Country: None (occurrence: None)
  Receive Date: 20070501
  Receipt Date: 20070416
  Transmission Date: 20071010
  Serious: Yes (Death, Life-Threatening, Hospitalization)
  Sender: FDA-Public Use
  Company Number: 2007000681

PATIENT
  Age: 71 Year
  Sex: Male

DRUGS (13)
  1. ERLOTINIB (TABLET) [Suspect]
     Indication: NON-SMALL CELL LUNG CANCER
     Dosage: 150 MG (QD) ORAL
     Route: 048
     Dates: start: 20070309, end: 20070401
  2. MARCUMAR [Concomitant]
  3. NEBIVOLOL (NEBIVOLOL) [Concomitant]
  4. ENALAPRIL (ENLAPRIL) [Concomitant]
  5. ENOXAPARIN SODIUM [Concomitant]
  6. MOXIFLOXACIN HCL [Concomitant]
  7. ESIDRIX [Concomitant]
  8. POTASSIUM CHLORIDE [Concomitant]
  9. TEPILTA (MUCAINE) [Concomitant]
  10. NEBIVOLOL HCL [Concomitant]
  11. DIGOXIN [Concomitant]
  12. FORADIL (FORMOTERIL FUMARATE) [Concomitant]
  13. SPIRIVA [Concomitant]

REACTIONS (2)
  - PNEUMONIA [None]
  - PNEUMOTHORAX [None]
